FAERS Safety Report 4865220-0 (Version None)
Quarter: 2005Q4

REPORT INFORMATION
  Report Type: 
  Country: None (occurrence: None)
  Receive Date: 20051223
  Receipt Date: 20051219
  Transmission Date: 20060501
  Serious: Yes (Death)
  Sender: FDA-Public Use
  Company Number: GB-GLAXOSMITHKLINE-B0404163A

PATIENT
  Sex: Male

DRUGS (2)
  1. COMBIVIR [Suspect]
     Route: 048
  2. SAQUINAVIR [Concomitant]

REACTIONS (1)
  - MYOSITIS [None]
